FAERS Safety Report 11255841 (Version 1)
Quarter: 2015Q3

REPORT INFORMATION
  Report Type: Spontaneous
  Country: CH (occurrence: CH)
  Receive Date: 20150709
  Receipt Date: 20150709
  Transmission Date: 20151125
  Serious: Yes (Hospitalization)
  Sender: FDA-Public Use
  Company Number: CH-SA-2015SA096900

PATIENT
  Age: 86 Year
  Sex: Female

DRUGS (7)
  1. SINTROM [Suspect]
     Active Substance: ACENOCOUMAROL
     Indication: ANTICOAGULANT THERAPY
     Route: 048
     Dates: end: 20150128
  2. AMOXICILLIN/CLAVULANIC ACID [Concomitant]
     Indication: PNEUMONIA
  3. MOXIFLOXACIN. [Concomitant]
     Active Substance: MOXIFLOXACIN
     Indication: RESPIRATORY DISORDER
  4. TOREM [Concomitant]
     Active Substance: TORSEMIDE
  5. PEMZEK [Concomitant]
  6. CONCOR [Concomitant]
     Active Substance: BISOPROLOL FUMARATE
  7. CLEXANE [Suspect]
     Active Substance: ENOXAPARIN SODIUM
     Indication: ANTICOAGULANT THERAPY
     Route: 058
     Dates: start: 201501, end: 20150128

REACTIONS (3)
  - Myocardial ischaemia [Recovered/Resolved]
  - Retroperitoneal haemorrhage [Recovering/Resolving]
  - Anaemia [Recovering/Resolving]

NARRATIVE: CASE EVENT DATE: 201501
